FAERS Safety Report 8001470-2 (Version None)
Quarter: 2011Q4

REPORT INFORMATION
  Report Type: 
  Country: None (occurrence: None)
  Receive Date: 20111222
  Receipt Date: 20111219
  Transmission Date: 20120403
  Serious: Yes (Hospitalization)
  Sender: FDA-Public Use
  Company Number: US-ROCHE-1023106

PATIENT
  Sex: Female

DRUGS (4)
  1. COPEGUS [Suspect]
     Dates: start: 20111021
  2. PEGINTERFERON ALFA-2A [Suspect]
     Dates: start: 20111021
  3. PEGINTERFERON ALFA-2A [Suspect]
     Indication: HEPATITIS C
     Dates: start: 20091002, end: 20101001
  4. COPEGUS [Suspect]
     Indication: HEPATITIS C
     Dates: start: 20091002, end: 20101001

REACTIONS (1)
  - BACK DISORDER [None]
